FAERS Safety Report 26007921 (Version 1)
Quarter: 2025Q4

REPORT INFORMATION
  Report Type: Spontaneous
  Country: EU (occurrence: EU)
  Receive Date: 20251106
  Receipt Date: 20251106
  Transmission Date: 20260118
  Serious: Yes (Hospitalization)
  Sender: MYLAN
  Company Number: None

PATIENT
  Age: 44 Year
  Sex: Male

DRUGS (11)
  1. GABAPENTIN [Suspect]
     Active Substance: GABAPENTIN
     Indication: Product used for unknown indication
     Dosage: 300 MILLIGRAM, TID (1 IN THE MORNING, 1 AT NOON, 1 IN THE EVENING)
     Dates: start: 20250202, end: 20250202
  2. METHADONE HYDROCHLORIDE [Suspect]
     Active Substance: METHADONE HYDROCHLORIDE
     Indication: Product used for unknown indication
     Dosage: UNK UNK, QD (1/DAY)
  3. METHADONE HYDROCHLORIDE [Suspect]
     Active Substance: METHADONE HYDROCHLORIDE
     Indication: Product used for unknown indication
     Dosage: QD  (1/DAY)
  4. COCAINE [Suspect]
     Active Substance: COCAINE
     Indication: Product used for unknown indication
     Dosage: UNK
  5. LOXAPINE [Suspect]
     Active Substance: LOXAPINE
     Indication: Product used for unknown indication
     Dosage: 25 MILLIGRAM, QD (1/DAY)
     Dates: start: 20250825, end: 20250825
  6. METHYLPHENIDATE HYDROCHLORIDE [Suspect]
     Active Substance: METHYLPHENIDATE HYDROCHLORIDE
     Indication: Product used for unknown indication
     Dosage: 40 MILLIGRAM, BID (1 IN THE MORNING AND 1 AT TEATIME)
  7. KARDEGIC [Concomitant]
     Active Substance: ASPIRIN DL-LYSINE
     Dosage: 75 MILLIGRAM, QD (1/DAY)
  8. OLANZAPINE [Concomitant]
     Active Substance: OLANZAPINE
     Dosage: 20 MILLIGRAM, QD
  9. NEFOPAM [Concomitant]
     Active Substance: NEFOPAM
     Dosage: 20 MILLIGRAM, BID (1 AMPOULE IN THE MORNING AND 1 IN THE EVENING)
  10. IMOVANE [Concomitant]
     Active Substance: ZOPICLONE
     Dosage: 7.5 MILLIGRAM, QD (1/DAY)
  11. CLOTIAZEPAM [Concomitant]
     Active Substance: CLOTIAZEPAM
     Dosage: 10 MILLIGRAM, TID (3/DAY)

REACTIONS (6)
  - Suicidal ideation [Not Recovered/Not Resolved]
  - Hepatitis C RNA [Not Recovered/Not Resolved]
  - Agitation [Not Recovered/Not Resolved]
  - Intentional product misuse [Not Recovered/Not Resolved]
  - Drug withdrawal syndrome [Not Recovered/Not Resolved]
  - Drug abuse [Not Recovered/Not Resolved]
